FAERS Safety Report 6100492-6 (Version None)
Quarter: 2009Q1

REPORT INFORMATION
  Report Type: 
  Country: None (occurrence: None)
  Receive Date: 20090226
  Receipt Date: 20090223
  Transmission Date: 20090719
  Serious: Yes (Death, Life-Threatening, Hospitalization, Other)
  Sender: FDA-Public Use
  Company Number: 1000004924

PATIENT
  Age: 48 Year
  Sex: Male

DRUGS (4)
  1. CITALOPRAM HYDROBROMIDE [Suspect]
     Indication: JEALOUS DELUSION
     Dosage: 20 MG (20 MG, 1 IN 1 D), ORAL
     Route: 048
     Dates: start: 20060415, end: 20060419
  2. SEROQUEL [Concomitant]
  3. VALIUM [Concomitant]
  4. VIAGRA [Concomitant]

REACTIONS (5)
  - COMPLETED SUICIDE [None]
  - GUN SHOT WOUND [None]
  - MARITAL PROBLEM [None]
  - PHYSICAL ASSAULT [None]
  - STRESS AT WORK [None]
